FAERS Safety Report 6524411-3 (Version None)
Quarter: 2010Q1

REPORT INFORMATION
  Report Type: 
  Country: None (occurrence: None)
  Receive Date: 20100102
  Receipt Date: 20091223
  Transmission Date: 20100710
  Serious: Yes (Disabling)
  Sender: FDA-Public Use
  Company Number: PHHY2009CO57907

PATIENT
  Sex: Female

DRUGS (3)
  1. STALEVO 100 [Suspect]
     Indication: PARKINSON'S DISEASE
     Dosage: 100 MG
     Route: 048
     Dates: start: 20091024
  2. STALEVO 100 [Suspect]
     Dosage: 50 MG
     Route: 048
  3. MIRAPEX [Concomitant]
     Dosage: 1 MG

REACTIONS (5)
  - ABASIA [None]
  - ANXIETY [None]
  - DYSKINESIA [None]
  - MOOD ALTERED [None]
  - PARAESTHESIA [None]
